FAERS Safety Report 8089269-2 (Version None)
Quarter: 2012Q1

REPORT INFORMATION
  Report Type: 
  Country: None (occurrence: None)
  Receive Date: 20120128
  Receipt Date: 20110825
  Transmission Date: 20120608
  Serious: No
  Sender: FDA-Public Use
  Company Number: US-ABBOTT-11P-163-0717675-00

PATIENT
  Sex: Female
  Weight: 81.72 kg

DRUGS (8)
  1. XANAX [Suspect]
     Indication: ANXIETY
     Dates: end: 20110309
  2. ALLEGRA [Concomitant]
     Indication: SEASONAL ALLERGY
  3. PREDNISONE TAB [Concomitant]
     Indication: CROHN'S DISEASE
  4. MERCAPTOPURINE [Concomitant]
     Indication: CROHN'S DISEASE
  5. HUMIRA [Suspect]
     Dates: start: 20110301
  6. HUMIRA [Suspect]
     Indication: CROHN'S DISEASE
     Dates: start: 20110309, end: 20110309
  7. HUMIRA [Suspect]
     Dates: start: 20110323, end: 20110323
  8. SINGULAIR [Concomitant]
     Indication: SEASONAL ALLERGY

REACTIONS (2)
  - HEPATIC ENZYME INCREASED [None]
  - HEADACHE [None]
